FAERS Safety Report 24437756 (Version 1)
Quarter: 2024Q4

REPORT INFORMATION
  Report Type: Spontaneous
  Country: US (occurrence: None)
  Receive Date: 20241014
  Receipt Date: 20241014
  Transmission Date: 20250115
  Serious: Yes (Hospitalization)
  Sender: Public
  Company Number: None

PATIENT
  Age: 53 Year
  Sex: Male

DRUGS (3)
  1. DEFERASIROX [Suspect]
     Active Substance: DEFERASIROX
     Indication: Iron metabolism disorder
     Dosage: FREQUENCY : DAILY;?
     Route: 048
     Dates: start: 202404
  2. PROMACTA [Concomitant]
  3. PREVYMIS (4X7) [Concomitant]

REACTIONS (3)
  - Sinusitis [None]
  - Pneumonia fungal [None]
  - Fungal infection [None]

NARRATIVE: CASE EVENT DATE: 20240814
